FAERS Safety Report 6021548-2 (Version None)
Quarter: 2008Q4

REPORT INFORMATION
  Report Type: 
  Country: None (occurrence: None)
  Receive Date: 20081229
  Receipt Date: 20081217
  Transmission Date: 20090506
  Serious: Yes (Other)
  Sender: FDA-Public Use
  Company Number: PHHY2008FI32407

PATIENT
  Sex: Female

DRUGS (7)
  1. RITALIN [Suspect]
     Indication: DISTURBANCE IN ATTENTION
     Dosage: 10MG X 2
     Dates: start: 20030301, end: 20050101
  2. RITALIN [Suspect]
     Indication: PSYCHOMOTOR HYPERACTIVITY
  3. CONCERTA [Suspect]
     Indication: DISTURBANCE IN ATTENTION
     Dosage: 36MG X 1
     Dates: start: 20050101
  4. CONCERTA [Suspect]
     Indication: PSYCHOMOTOR HYPERACTIVITY
  5. DEPRAKINE [Concomitant]
     Indication: AFFECTIVE DISORDER
     Dosage: 300MG X 2
     Dates: start: 20050609
  6. DEPRAKINE [Concomitant]
     Indication: PSYCHOMOTOR HYPERACTIVITY
  7. ATARAX [Concomitant]
     Indication: SLEEP DISORDER
     Dosage: 25MG X 1
     Dates: start: 20050101

REACTIONS (4)
  - COLD EXPOSURE INJURY [None]
  - PERIPHERAL COLDNESS [None]
  - RAYNAUD'S PHENOMENON [None]
  - SKIN DISCOLOURATION [None]
